FAERS Safety Report 21625677 (Version 5)
Quarter: 2024Q1

REPORT INFORMATION
  Report Type: Spontaneous
  Country: ES (occurrence: ES)
  Receive Date: 20221122
  Receipt Date: 20240123
  Transmission Date: 20240410
  Serious: Yes (Life-Threatening, Hospitalization, Other)
  Sender: FDA-Public Use
  Company Number: ES-LESVI-2022005253

PATIENT
  Age: 52 Year
  Sex: Male

DRUGS (25)
  1. DARUNAVIR [Interacting]
     Active Substance: DARUNAVIR
     Indication: HIV infection
     Dosage: 600 MILLIGRAM, TWO TIMES A DAY
     Route: 065
     Dates: start: 20100824
  2. QUETIAPINE [Interacting]
     Active Substance: QUETIAPINE
     Indication: Antipsychotic therapy
     Dosage: 300 MILLIGRAM, TWO TIMES A DAY
     Route: 065
     Dates: start: 20170426
  3. CLORAZEPATE DIPOTASSIUM [Concomitant]
     Active Substance: CLORAZEPATE DIPOTASSIUM
     Indication: Anxiolytic therapy
     Dosage: 15 MILLIGRAM 4.5 HOUR
     Route: 065
     Dates: start: 20190221
  4. DULAGLUTIDE [Concomitant]
     Active Substance: DULAGLUTIDE
     Indication: Diabetes mellitus
     Dosage: 1.5 MILLIGRAM, EVERY WEEK
     Route: 065
     Dates: start: 20190529
  5. DULAGLUTIDE [Concomitant]
     Active Substance: DULAGLUTIDE
     Dosage: 1 MILLIGRAM, EVERY WEEK
     Route: 065
     Dates: start: 20190529
  6. DULAGLUTIDE [Concomitant]
     Active Substance: DULAGLUTIDE
     Dosage: 5 MILLIGRAM, EVERY WEEK
     Route: 065
     Dates: start: 20190529
  7. ETRAVIRINE [Concomitant]
     Active Substance: ETRAVIRINE
     Indication: HIV infection
     Dosage: 200 MILLIGRAM, ONCE A DAY
     Route: 065
     Dates: start: 20140527
  8. FENOFIBRATE [Concomitant]
     Active Substance: FENOFIBRATE
     Indication: Hyperlipidaemia
     Dosage: 145 MILLIGRAM, ONCE A DAY
     Route: 065
     Dates: start: 20200420
  9. FENOFIBRATE [Concomitant]
     Active Substance: FENOFIBRATE
     Indication: Lipids abnormal
  10. GABAPENTIN [Concomitant]
     Active Substance: GABAPENTIN
     Indication: Analgesic therapy
     Dosage: 600 MILLIGRAM, 3 TIMES A DAY
     Route: 065
     Dates: start: 20211015
  11. INSULIN ASPART [Concomitant]
     Active Substance: INSULIN ASPART
     Indication: Diabetes mellitus
     Dosage: 10 INTERNATIONAL UNIT, 3 TIMES A DAY
     Route: 065
     Dates: start: 20200707
  12. INSULIN GLARGINE [Concomitant]
     Active Substance: INSULIN GLARGINE
     Indication: Diabetes mellitus
     Dosage: 60 INTERNATIONAL UNIT, ONCE A DAY
     Route: 065
     Dates: start: 20190527
  13. LORMETAZEPAM [Concomitant]
     Active Substance: LORMETAZEPAM
     Indication: Hypnotherapy
     Dosage: 2 MILLIGRAM, ONCE A DAY
     Route: 065
     Dates: start: 20171216
  14. LORMETAZEPAM [Concomitant]
     Active Substance: LORMETAZEPAM
     Indication: Insomnia
  15. LORMETAZEPAM [Concomitant]
     Active Substance: LORMETAZEPAM
     Indication: Sedative therapy
  16. LOSARTAN [Concomitant]
     Active Substance: LOSARTAN
     Indication: Hypertension
     Dosage: 100 MILLIGRAM, ONCE A DAY
     Route: 065
     Dates: start: 20181013
  17. METAMIZOLE [Concomitant]
     Active Substance: METAMIZOLE
     Indication: Analgesic therapy
     Dosage: 575 MILLIGRAM, 3 TIMES A DAY
     Route: 065
     Dates: start: 20210707
  18. OMEPRAZOLE [Concomitant]
     Active Substance: OMEPRAZOLE
     Indication: Ulcer
     Dosage: 40 MILLIGRAM, ONCE A DAY
     Route: 065
     Dates: start: 20191127
  19. OMEPRAZOLE [Concomitant]
     Active Substance: OMEPRAZOLE
     Indication: Prophylaxis against gastrointestinal ulcer
  20. ACETAMINOPHEN [Concomitant]
     Active Substance: ACETAMINOPHEN
     Indication: Analgesic therapy
     Dosage: 1 GRAM, TWO TIMES A DAY
     Route: 065
     Dates: start: 20210721
  21. ROSUVASTATIN [Concomitant]
     Active Substance: ROSUVASTATIN
     Indication: Hyperlipidaemia
     Dosage: 5 MILLIGRAM, ONCE A DAY
     Route: 065
     Dates: start: 20180511
  22. ROSUVASTATIN [Concomitant]
     Active Substance: ROSUVASTATIN
     Indication: Lipids abnormal
  23. ZOLPIDEM [Concomitant]
     Active Substance: ZOLPIDEM TARTRATE
     Indication: Hypnotherapy
     Dosage: 10 MILLIGRAM, ONCE A DAY
     Route: 065
     Dates: start: 20180511
  24. ZOLPIDEM [Concomitant]
     Active Substance: ZOLPIDEM TARTRATE
     Indication: Insomnia
     Dosage: 10 MILLIGRAM, ONCE A DAY
     Route: 065
     Dates: start: 20190313
  25. ZOLPIDEM [Concomitant]
     Active Substance: ZOLPIDEM TARTRATE
     Indication: Sedative therapy

REACTIONS (10)
  - Tachycardia [Recovered/Resolved]
  - Confusional state [Recovered/Resolved]
  - Agitation [Recovered/Resolved]
  - Drug interaction [Recovered/Resolved]
  - Restlessness [Recovered/Resolved]
  - Insomnia [Recovered/Resolved]
  - Drug level increased [Recovered/Resolved]
  - Antipsychotic drug level increased [Unknown]
  - Nervousness [Recovered/Resolved]
  - Extra dose administered [Unknown]
